FAERS Safety Report 8583328-3 (Version None)
Quarter: 2012Q3

REPORT INFORMATION
  Report Type: 
  Country: None (occurrence: None)
  Receive Date: 20120809
  Receipt Date: 20120801
  Transmission Date: 20120928
  Serious: Yes (Hospitalization)
  Sender: FDA-Public Use
  Company Number: DE-B.I. PHARMACEUTICALS,INC./RIDGEFIELD-2012-DE-01787DE

PATIENT
  Age: 74 Year
  Sex: Female
  Weight: 55 kg

DRUGS (8)
  1. DIGITOXIN TAB [Concomitant]
     Dosage: 0.07 NR
  2. PRADAXA [Suspect]
     Indication: ATRIAL FIBRILLATION
     Dosage: 220 MG
  3. BISOPROLOL FUMARATE [Concomitant]
     Dosage: 20 MG
  4. APPROVEL [Concomitant]
     Dosage: 150 MG
  5. SIMVASTATIN [Concomitant]
     Dosage: 40 MG
  6. GARBAPENTIN [Concomitant]
     Dosage: 300 MG
  7. XIPAMID [Concomitant]
     Dosage: 40 MG
  8. INSULIN [Concomitant]
     Indication: DIABETES MELLITUS

REACTIONS (5)
  - DECREASED APPETITE [None]
  - BLOOD URINE PRESENT [None]
  - HAEMATOCHEZIA [None]
  - WEIGHT DECREASED [None]
  - TUMOUR MARKER INCREASED [None]
